FAERS Safety Report 8157979-4 (Version None)
Quarter: 2012Q1

REPORT INFORMATION
  Report Type: 
  Country: None (occurrence: None)
  Receive Date: 20120222
  Receipt Date: 20120210
  Transmission Date: 20120608
  Serious: Yes (Other)
  Sender: FDA-Public Use
  Company Number: PHHY2009CA45320

PATIENT
  Sex: Female

DRUGS (1)
  1. SANDOSTATIN LAR [Suspect]
     Indication: CARCINOID TUMOUR
     Dosage: 50 MG, EVERY 4 WEEKS
     Route: 030
     Dates: start: 20081210

REACTIONS (24)
  - MUSCULOSKELETAL PAIN [None]
  - ABDOMINAL DISTENSION [None]
  - HYPERHIDROSIS [None]
  - URTICARIA [None]
  - RESPIRATORY DISORDER [None]
  - FLUSHING [None]
  - DIZZINESS [None]
  - NAUSEA [None]
  - HEART RATE INCREASED [None]
  - FATIGUE [None]
  - HEADACHE [None]
  - MYALGIA [None]
  - ASTHENIA [None]
  - NECK PAIN [None]
  - PAIN [None]
  - CHOLELITHIASIS [None]
  - TREMOR [None]
  - ABDOMINAL DISCOMFORT [None]
  - DYSPNOEA [None]
  - ABDOMINAL PAIN UPPER [None]
  - MUSCULOSKELETAL STIFFNESS [None]
  - NEOPLASM PROGRESSION [None]
  - SENSATION OF PRESSURE [None]
  - MALAISE [None]
